FAERS Safety Report 9652066 (Version 1)
Quarter: 2013Q4

REPORT INFORMATION
  Report Type: Spontaneous
  Country: US (occurrence: None)
  Receive Date: 20131028
  Receipt Date: 20131028
  Transmission Date: 20140711
  Serious: No
  Sender: FDA-Public Use
  Company Number: None

PATIENT
  Age: 58 Year
  Sex: Male
  Weight: 85.7 kg

DRUGS (4)
  1. SULFAMETHOXAZOLE/TRIMETHOPRIM [Suspect]
     Indication: CELLULITIS
     Route: 048
     Dates: start: 20130730, end: 20130808
  2. METHYLPREDNISOLONE [Concomitant]
  3. DIPHENHYDRAMINE [Concomitant]
  4. HYDROXYZINE [Concomitant]

REACTIONS (3)
  - Angioedema [None]
  - Rash [None]
  - Lip swelling [None]
